FAERS Safety Report 12764461 (Version 1)
Quarter: 2016Q3

REPORT INFORMATION
  Report Type: Spontaneous
  Country: DK (occurrence: DK)
  Receive Date: 20160920
  Receipt Date: 20160920
  Transmission Date: 20161109
  Serious: Yes (Hospitalization)
  Sender: FDA-Public Use
  Company Number: DK-FRESENIUS KABI-FK201606747

PATIENT
  Age: 28 Year
  Sex: Female

DRUGS (2)
  1. CHORIONIC GONADOTROPIN [Suspect]
     Active Substance: CHORIOGONADOTROPIN ALFA
     Indication: WEIGHT LOSS DIET
     Route: 030
  2. CONTRACEPTIVES [Suspect]
     Active Substance: UNSPECIFIED INGREDIENT
     Indication: PRODUCT USED FOR UNKNOWN INDICATION
     Route: 065

REACTIONS (6)
  - Drug interaction [Recovered/Resolved]
  - Thrombosis [Unknown]
  - Product use issue [Unknown]
  - Thrombosis mesenteric vessel [Unknown]
  - Unwanted pregnancy [Recovered/Resolved]
  - Splenomegaly [Unknown]
